FAERS Safety Report 5386470-3 (Version None)
Quarter: 2007Q3

REPORT INFORMATION
  Report Type: 
  Country: None (occurrence: None)
  Receive Date: 20070713
  Receipt Date: 20070703
  Transmission Date: 20080115
  Serious: Yes (Other)
  Sender: FDA-Public Use
  Company Number: US-JNJFOC-20070600515

PATIENT
  Sex: Male

DRUGS (4)
  1. INVEGA [Suspect]
     Indication: DRUG USE FOR UNKNOWN INDICATION
     Route: 048
  2. DEXMETHYLPHENIDATE HYDROCHLORIDE [Concomitant]
     Route: 048
  3. ATIVAN [Concomitant]
     Route: 048
  4. CLONIDINE [Concomitant]
     Route: 048

REACTIONS (1)
  - CONVULSION [None]
